FAERS Safety Report 12798358 (Version 1)
Quarter: 2016Q3

REPORT INFORMATION
  Report Type: Spontaneous
  Country: US (occurrence: US)
  Receive Date: 20160930
  Receipt Date: 20160930
  Transmission Date: 20161109
  Serious: No
  Sender: FDA-Public Use
  Company Number: US-KOWA-15US001219

PATIENT
  Sex: Female

DRUGS (8)
  1. LIVALO [Suspect]
     Active Substance: PITAVASTATIN CALCIUM
     Indication: BLOOD CHOLESTEROL
     Dosage: 2 MG, UNK
     Dates: start: 2015
  2. LIVALO [Suspect]
     Active Substance: PITAVASTATIN CALCIUM
     Dosage: 2 UNK, UNK
  3. LIVALO [Suspect]
     Active Substance: PITAVASTATIN CALCIUM
     Dosage: 2 UNK, UNK
  4. CLOPIDOGREL (GENERIC PLAVIX) [Concomitant]
     Indication: ANTICOAGULANT THERAPY
     Dosage: UNK
     Dates: start: 201404
  5. LIVALO [Suspect]
     Active Substance: PITAVASTATIN CALCIUM
     Dosage: 0.5 DF, UNK
  6. LYRICA [Concomitant]
     Active Substance: PREGABALIN
     Dosage: UNK
  7. TYLENOL [Concomitant]
     Active Substance: ACETAMINOPHEN
     Indication: ARTHRITIS
  8. XANAX [Concomitant]
     Active Substance: ALPRAZOLAM
     Indication: PAIN

REACTIONS (4)
  - Myalgia [Not Recovered/Not Resolved]
  - Off label use [Unknown]
  - Wrong technique in product usage process [Unknown]
  - Muscular weakness [Not Recovered/Not Resolved]

NARRATIVE: CASE EVENT DATE: 2014
